FAERS Safety Report 20612002 (Version 4)
Quarter: 2022Q2

REPORT INFORMATION
  Report Type: Report from Study
  Country: BR (occurrence: BR)
  Receive Date: 20220318
  Receipt Date: 20220412
  Transmission Date: 20220721
  Serious: Yes (Other)
  Sender: FDA-Public Use
  Company Number: BR-JNJFOC-20220225410

PATIENT
  Age: 60 Year
  Sex: Female
  Weight: 72 kg

DRUGS (2)
  1. SPRAVATO [Suspect]
     Active Substance: ESKETAMINE
     Indication: Major depression
     Dates: start: 20220207
  2. SPRAVATO [Suspect]
     Active Substance: ESKETAMINE
     Dates: start: 202202

REACTIONS (20)
  - Suicide attempt [Unknown]
  - Suicidal ideation [Unknown]
  - Hallucination [Unknown]
  - Bedridden [Unknown]
  - Anger [Unknown]
  - Decreased appetite [Unknown]
  - Chest pain [Unknown]
  - Chest discomfort [Unknown]
  - Malaise [Unknown]
  - Panic disorder [Unknown]
  - Depression [Not Recovered/Not Resolved]
  - Dysgeusia [Unknown]
  - Headache [Not Recovered/Not Resolved]
  - Nervousness [Unknown]
  - Somnolence [Unknown]
  - Euphoric mood [Unknown]
  - Anxiety [Unknown]
  - Sedation [Unknown]
  - Nausea [Unknown]
  - Dizziness [Unknown]

NARRATIVE: CASE EVENT DATE: 20220101
